FAERS Safety Report 14406756 (Version 2)
Quarter: 2018Q1

REPORT INFORMATION
  Report Type: Report from Study
  Country: US (occurrence: US)
  Receive Date: 20180118
  Receipt Date: 20180125
  Transmission Date: 20180509
  Serious: Yes (Death, Hospitalization)
  Sender: FDA-Public Use
  Company Number: US-TAKEDA-2018TUS001492

PATIENT
  Sex: Male

DRUGS (1)
  1. PONATINIB [Suspect]
     Active Substance: PONATINIB
     Indication: CHRONIC MYELOID LEUKAEMIA
     Dosage: 45 MG, QD
     Route: 048

REACTIONS (21)
  - Gout [Unknown]
  - Rash pruritic [Unknown]
  - Pyrexia [Unknown]
  - Decreased appetite [Unknown]
  - Joint swelling [Unknown]
  - Hospitalisation [Unknown]
  - Chest pain [Unknown]
  - Arthralgia [Unknown]
  - Night sweats [Unknown]
  - Pain [Unknown]
  - Weight decreased [Unknown]
  - Oedema [Unknown]
  - Anaemia [Unknown]
  - Anxiety [Unknown]
  - Chills [Unknown]
  - Dyspnoea [Unknown]
  - Thrombocytopenia [Unknown]
  - Death [Fatal]
  - Leukocytosis [Unknown]
  - Mass [Unknown]
  - Muscle spasms [Unknown]
